FAERS Safety Report 8956866 (Version 2)
Quarter: 2013Q1

REPORT INFORMATION
  Report Type: Spontaneous
  Country: GB (occurrence: GB)
  Receive Date: 20121211
  Receipt Date: 20130109
  Transmission Date: 20140127
  Serious: Yes (Death)
  Sender: FDA-Public Use
  Company Number: GB-UCBSA-072533

PATIENT
  Age: 64 Year
  Sex: Male
  Weight: 112.8 kg

DRUGS (8)
  1. CIMZIA [Suspect]
     Indication: RHEUMATOID ARTHRITIS
     Route: 058
     Dates: start: 20110401, end: 201210
  2. SULPHASALAZINE [Concomitant]
     Indication: RHEUMATOID ARTHRITIS
     Dates: start: 20080312
  3. SULPHASALAZINE [Concomitant]
     Indication: RHEUMATOID ARTHRITIS
  4. HYDROXYCHLOROQUINE [Concomitant]
     Dosage: DAILY DOSE : 200 MG
     Dates: start: 20060316
  5. CO-CODAMOL [Concomitant]
     Indication: ARTHRALGIA
  6. METFORMIN [Concomitant]
  7. NAPROXEN [Concomitant]
  8. SIMVASTATIN [Concomitant]

REACTIONS (4)
  - Pancreatic carcinoma metastatic [Fatal]
  - Metastases to lung [Fatal]
  - Metastases to liver [Fatal]
  - Abdominal pain [Not Recovered/Not Resolved]
